FAERS Safety Report 7088909-4 (Version None)
Quarter: 2010Q4

REPORT INFORMATION
  Report Type: 
  Country: None (occurrence: None)
  Receive Date: 20101108
  Receipt Date: 20101026
  Transmission Date: 20110411
  Serious: Yes (Other)
  Sender: FDA-Public Use
  Company Number: US-WATSON-2010-14224

PATIENT
  Sex: Female

DRUGS (1)
  1. HYDROXYPROGESTERONE CAPROATE [Suspect]
     Indication: MULTIPLE PREGNANCY
     Dosage: 250 MG, 1/WEEK
     Route: 030

REACTIONS (3)
  - DRUG EXPOSURE DURING PREGNANCY [None]
  - DRUG INEFFECTIVE [None]
  - INTRA-UTERINE DEATH [None]
